FAERS Safety Report 19193274 (Version 1)
Quarter: 2021Q2

REPORT INFORMATION
  Report Type: Other
  Country: ES (occurrence: ES)
  Receive Date: 20210428
  Receipt Date: 20210428
  Transmission Date: 20210717
  Serious: Yes (Other)
  Sender: FDA-Public Use
  Company Number: ES-VALIDUS PHARMACEUTICALS LLC-ES-2021VAL001145

PATIENT

DRUGS (2)
  1. FUROSEMIDE. [Suspect]
     Active Substance: FUROSEMIDE
     Indication: HYPERTENSION
     Dosage: 100 MG, QD (1?1,5?0 FUROSEMIDE 40 MG TABLETS GENERIC  PHARMACEUTICAL SPECIALTY, 10 TABLETS)
     Route: 048
     Dates: start: 20160825, end: 20210302
  2. CEFIXIME. [Suspect]
     Active Substance: CEFIXIME
     Indication: URINARY TRACT INFECTION
     Dosage: 400 MG, QD (1 TABLET A DAY CEFIXIME 400 MG 10 TABLETS
     Route: 048
     Dates: start: 20210222, end: 20210228

REACTIONS (2)
  - General physical health deterioration [Recovering/Resolving]
  - Hyponatraemia [Recovering/Resolving]

NARRATIVE: CASE EVENT DATE: 20210222
